FAERS Safety Report 12403338 (Version 1)
Quarter: 2016Q2

REPORT INFORMATION
  Report Type: Spontaneous
  Country: US (occurrence: US)
  Receive Date: 20160525
  Receipt Date: 20160525
  Transmission Date: 20160815
  Serious: Yes (Hospitalization, Other)
  Sender: FDA-Public Use
  Company Number: US-INCYTE CORPORATION-2016IN002224

PATIENT
  Age: 79 Year
  Sex: Male
  Weight: 89.8 kg

DRUGS (23)
  1. JAKAFI [Suspect]
     Active Substance: RUXOLITINIB
     Indication: MYELOFIBROSIS
     Dosage: 5 MG, BID
     Route: 048
     Dates: start: 20151005
  2. FINASTERIDE. [Concomitant]
     Active Substance: FINASTERIDE
     Indication: PRODUCT USED FOR UNKNOWN INDICATION
     Dosage: 5 MG, QD
     Route: 048
  3. SIMVASTATIN. [Concomitant]
     Active Substance: SIMVASTATIN
     Indication: PRODUCT USED FOR UNKNOWN INDICATION
     Dosage: 40 MG, QD, HS
     Route: 048
  4. JAKAFI [Suspect]
     Active Substance: RUXOLITINIB
     Dosage: 5 MG, BID
     Route: 048
     Dates: start: 20160315
  5. JAKAFI [Suspect]
     Active Substance: RUXOLITINIB
     Dosage: 5 MG, BID
     Route: 048
     Dates: start: 201510
  6. TRAMADOL. [Concomitant]
     Active Substance: TRAMADOL
     Indication: PRODUCT USED FOR UNKNOWN INDICATION
     Dosage: 50 MG, BID
     Route: 048
  7. LISINOPRIL. [Concomitant]
     Active Substance: LISINOPRIL
     Indication: PRODUCT USED FOR UNKNOWN INDICATION
     Dosage: 10 MG, BID
  8. NEXIUM [Concomitant]
     Active Substance: ESOMEPRAZOLE MAGNESIUM
     Indication: PRODUCT USED FOR UNKNOWN INDICATION
     Dosage: 20 MG, BID
     Route: 048
  9. FLUOXETINE [Concomitant]
     Active Substance: FLUOXETINE HYDROCHLORIDE
     Indication: PRODUCT USED FOR UNKNOWN INDICATION
     Dosage: 20 MG, QD
     Route: 048
  10. ZYRTEC [Concomitant]
     Active Substance: CETIRIZINE HYDROCHLORIDE
     Indication: PRODUCT USED FOR UNKNOWN INDICATION
     Dosage: 10 MG, QD, PRN
     Route: 048
  11. NORVASC [Concomitant]
     Active Substance: AMLODIPINE BESYLATE
     Indication: PRODUCT USED FOR UNKNOWN INDICATION
  12. ZOSTAVAX [Concomitant]
     Active Substance: VARICELLA-ZOSTER VIRUS STRAIN OKA/MERCK LIVE ANTIGEN
     Indication: PRODUCT USED FOR UNKNOWN INDICATION
  13. ZOLPIDEM [Concomitant]
     Active Substance: ZOLPIDEM\ZOLPIDEM TARTRATE
     Indication: PRODUCT USED FOR UNKNOWN INDICATION
  14. CALCITRIOL. [Concomitant]
     Active Substance: CALCITRIOL
     Indication: PRODUCT USED FOR UNKNOWN INDICATION
     Dosage: 0.25 MCG, QD
     Route: 048
  15. AMLODIPINE [Concomitant]
     Active Substance: AMLODIPINE BESYLATE
     Indication: PRODUCT USED FOR UNKNOWN INDICATION
  16. CLONIDINE. [Concomitant]
     Active Substance: CLONIDINE
     Indication: PRODUCT USED FOR UNKNOWN INDICATION
  17. ZOFRAN [Concomitant]
     Active Substance: ONDANSETRON HYDROCHLORIDE
     Indication: PRODUCT USED FOR UNKNOWN INDICATION
  18. PROZAC [Concomitant]
     Active Substance: FLUOXETINE HYDROCHLORIDE
     Indication: PRODUCT USED FOR UNKNOWN INDICATION
  19. VICODIN [Concomitant]
     Active Substance: ACETAMINOPHEN\HYDROCODONE BITARTRATE
     Indication: PAIN
     Dosage: 5-325 MG Q 6 HRS
  20. MUPIROCIN. [Concomitant]
     Active Substance: MUPIROCIN
     Indication: PRODUCT USED FOR UNKNOWN INDICATION
  21. GABAPENTIN. [Concomitant]
     Active Substance: GABAPENTIN
     Indication: PRODUCT USED FOR UNKNOWN INDICATION
  22. METOPROLOL. [Concomitant]
     Active Substance: METOPROLOL
     Indication: PRODUCT USED FOR UNKNOWN INDICATION
     Dosage: 50 MG, BID
     Route: 048
  23. JAKAFI [Suspect]
     Active Substance: RUXOLITINIB
     Indication: POLYCYTHAEMIA VERA
     Dosage: 5 MG, BID
     Route: 048
     Dates: start: 20160101

REACTIONS (43)
  - Subcutaneous abscess [Not Recovered/Not Resolved]
  - Fatigue [Unknown]
  - Rotator cuff syndrome [Unknown]
  - Vitamin B12 deficiency [Unknown]
  - Lumbar radiculopathy [Unknown]
  - White blood cell count increased [Recovered/Resolved]
  - Renal impairment [Unknown]
  - Blood pressure increased [Not Recovered/Not Resolved]
  - Radicular pain [Unknown]
  - Ecchymosis [Unknown]
  - Back pain [Not Recovered/Not Resolved]
  - Blood glucose increased [Unknown]
  - Blood creatinine increased [Unknown]
  - Blood lactate dehydrogenase increased [Unknown]
  - Hypersplenism [Unknown]
  - Dermatitis artefacta [Unknown]
  - Hepatitis A [Unknown]
  - Essential tremor [Unknown]
  - Spinal column stenosis [Unknown]
  - Rib fracture [Unknown]
  - Chest pain [Unknown]
  - Intervertebral disc degeneration [Unknown]
  - Gastroenteritis [Recovered/Resolved]
  - Dyspnoea exertional [Unknown]
  - Lymphatic disorder [Unknown]
  - Muscle strain [Unknown]
  - Organic erectile dysfunction [Unknown]
  - Herpes zoster [Recovering/Resolving]
  - Sciatica [Unknown]
  - Lymphocyte count decreased [Unknown]
  - Monocyte count increased [Unknown]
  - Skin injury [Unknown]
  - Asthenia [Unknown]
  - Acute kidney injury [Recovered/Resolved]
  - Seborrhoeic keratosis [Unknown]
  - Diarrhoea [Unknown]
  - Decreased appetite [Unknown]
  - Post herpetic neuralgia [Unknown]
  - Renal failure [Unknown]
  - Red cell distribution width abnormal [Unknown]
  - Blood urea increased [Unknown]
  - Hypercholesterolaemia [Unknown]
  - Vitamin B complex deficiency [Unknown]

NARRATIVE: CASE EVENT DATE: 20160413
